FAERS Safety Report 15413290 (Version 1)
Quarter: 2018Q3

REPORT INFORMATION
  Report Type: Report from Study
  Country: US (occurrence: US)
  Receive Date: 20180921
  Receipt Date: 20180921
  Transmission Date: 20181010
  Serious: Yes (Death, Life-Threatening, Other)
  Sender: FDA-Public Use
  Company Number: US-MYLANLABS-2018M1067562

PATIENT
  Age: 33 Year
  Sex: Female

DRUGS (3)
  1. PROPRANOLOL [Suspect]
     Active Substance: PROPRANOLOL HYDROCHLORIDE
     Indication: PRODUCT USED FOR UNKNOWN INDICATION
     Route: 065
  2. ESCITALOPRAM [Suspect]
     Active Substance: ESCITALOPRAM OXALATE
     Indication: PRODUCT USED FOR UNKNOWN INDICATION
     Route: 065
  3. LAMOTRIGINE. [Suspect]
     Active Substance: LAMOTRIGINE
     Indication: PRODUCT USED FOR UNKNOWN INDICATION
     Route: 065

REACTIONS (26)
  - Hypotension [Unknown]
  - Muscle rigidity [Unknown]
  - Hypoglycaemia [Unknown]
  - Tachycardia [Unknown]
  - Anion gap abnormal [Unknown]
  - Rhabdomyolysis [Unknown]
  - Electrocardiogram QRS complex prolonged [Unknown]
  - Electrocardiogram QT prolonged [Unknown]
  - Heart injury [Unknown]
  - Metabolic acidosis [Unknown]
  - Thrombocytopenia [Unknown]
  - Dystonia [Unknown]
  - Atrioventricular block [Unknown]
  - Respiratory depression [Unknown]
  - Delirium [Unknown]
  - Tremor [Unknown]
  - Seizure [Unknown]
  - Agitation [Unknown]
  - Hyperreflexia [Unknown]
  - Toxicity to various agents [Fatal]
  - Bradycardia [Unknown]
  - Depressed level of consciousness [Unknown]
  - Hyperthermia [Unknown]
  - Ventricular arrhythmia [Unknown]
  - Myocardial ischaemia [Unknown]
  - Coma [Unknown]
